FAERS Safety Report 7117392-5 (Version None)
Quarter: 2010Q4

REPORT INFORMATION
  Report Type: 
  Country: None (occurrence: None)
  Receive Date: 20101122
  Receipt Date: 20101116
  Transmission Date: 20110411
  Serious: Yes (Other)
  Sender: FDA-Public Use
  Company Number: DE-PFIZER INC-2010104502

PATIENT
  Age: 72 Year
  Sex: Male
  Weight: 75 kg

DRUGS (3)
  1. LYRICA [Suspect]
     Indication: DEPRESSION
     Dosage: 50 MG, 3X/DAY
     Route: 048
     Dates: start: 20100518
  2. LYRICA [Suspect]
     Indication: ANXIETY DISORDER
  3. TAMSULOSIN [Concomitant]
     Dosage: 0.4 MG, 1X/DAY
     Dates: start: 20100518, end: 20100815

REACTIONS (4)
  - RETINAL DEGENERATION [None]
  - RETINAL OEDEMA [None]
  - VISION BLURRED [None]
  - VISUAL ACUITY REDUCED [None]
